FAERS Safety Report 12599261 (Version 2)
Quarter: 2016Q3

REPORT INFORMATION
  Report Type: Report from Study
  Country: CA (occurrence: CA)
  Receive Date: 20160727
  Receipt Date: 20160801
  Transmission Date: 20161109
  Serious: Yes (Other)
  Sender: FDA-Public Use
  Company Number: CA-JNJFOC-20160717957

PATIENT
  Age: 38 Year
  Sex: Male
  Weight: 77.2 kg

DRUGS (1)
  1. REMICADE [Suspect]
     Active Substance: INFLIXIMAB
     Indication: COLITIS ULCERATIVE
     Dosage: ONCE EVERY AT 0, 2 AND THEN EVERY 6 WEEKS
     Route: 042
     Dates: start: 2007

REACTIONS (3)
  - Pharyngitis streptococcal [Unknown]
  - Colitis ulcerative [Unknown]
  - Cellulitis of male external genital organ [Unknown]

NARRATIVE: CASE EVENT DATE: 201607
